FAERS Safety Report 25520132 (Version 1)
Quarter: 2025Q3

REPORT INFORMATION
  Report Type: Report from Study
  Country: US (occurrence: US)
  Receive Date: 20250704
  Receipt Date: 20250704
  Transmission Date: 20251021
  Serious: Yes (Death, Other)
  Sender: TAKEDA
  Company Number: US-TAKEDA-2025TUS012803

PATIENT
  Age: 76 Year
  Sex: Female
  Weight: 59.41 kg

DRUGS (9)
  1. FRUQUINTINIB [Suspect]
     Active Substance: FRUQUINTINIB
     Indication: Rectal cancer
     Dosage: 5 MILLIGRAM, QD
     Dates: start: 20250201
  2. FRUQUINTINIB [Suspect]
     Active Substance: FRUQUINTINIB
  3. FRUQUINTINIB [Suspect]
     Active Substance: FRUQUINTINIB
  4. VITAMIN K [Concomitant]
     Active Substance: PHYTONADIONE
  5. VITAMIN A [Concomitant]
     Active Substance: VITAMIN A
  6. VITAMIN B [Concomitant]
     Active Substance: VITAMIN B
  7. VITAMIN C [Concomitant]
     Active Substance: ASCORBIC ACID
  8. Turkey tail [Concomitant]
  9. REISHI [Concomitant]
     Active Substance: REISHI

REACTIONS (10)
  - Death [Fatal]
  - Pain [Unknown]
  - Stress [Unknown]
  - Speech disorder [Unknown]
  - Somnolence [Recovering/Resolving]
  - Vomiting [Not Recovered/Not Resolved]
  - Diarrhoea [Recovered/Resolved]
  - Fatigue [Recovered/Resolved]
  - Blood pressure increased [Recovered/Resolved]
  - Asthenia [Unknown]

NARRATIVE: CASE EVENT DATE: 20250214
